FAERS Safety Report 17588871 (Version 1)
Quarter: 2020Q1

REPORT INFORMATION
  Report Type: Spontaneous
  Country: NL (occurrence: NL)
  Receive Date: 20200327
  Receipt Date: 20200327
  Transmission Date: 20200409
  Serious: Yes (Other)
  Sender: FDA-Public Use
  Company Number: NL-TEVA-2020-NL-1211206

PATIENT
  Sex: Male

DRUGS (4)
  1. TRILEPTAL [Concomitant]
     Active Substance: OXCARBAZEPINE
     Dosage: 300 MG
  2. DEPAKINE (VALPROINEZUUR) [Concomitant]
     Dosage: 500 MG
  3. LEVETIRACETAM. [Concomitant]
     Active Substance: LEVETIRACETAM
     Dosage: 500 MG
  4. PREDNISOLON [Suspect]
     Active Substance: PREDNISOLONE
     Indication: GOUT
     Dosage: 30 MILLIGRAM DAILY;
     Dates: start: 20200225, end: 20200226

REACTIONS (1)
  - Petit mal epilepsy [Recovered/Resolved]
